FAERS Safety Report 10167948 (Version 2)
Quarter: 2014Q3

REPORT INFORMATION
  Report Type: Spontaneous
  Country: IT (occurrence: IT)
  Receive Date: 20140512
  Receipt Date: 20140723
  Transmission Date: 20150326
  Serious: Yes (Hospitalization)
  Sender: FDA-Public Use
  Company Number: PHHY2014IT056249

PATIENT
  Age: 40 Year
  Sex: Male

DRUGS (5)
  1. EN [Suspect]
     Active Substance: DELORAZEPAM
     Indication: INTENTIONAL SELF-INJURY
     Dosage: 80 DRP, ONCE/SINGLE
     Route: 048
     Dates: start: 20140426, end: 20140426
  2. DAPAROX [Suspect]
     Active Substance: PAROXETINE HYDROCHLORIDE
     Indication: INTENTIONAL SELF-INJURY
     Dosage: 2 DF, ONCE/SINGLE
     Route: 048
     Dates: start: 20140426, end: 20140426
  3. ZOLPIDEM [Suspect]
     Active Substance: ZOLPIDEM\ZOLPIDEM TARTRATE
     Indication: INTENTIONAL SELF-INJURY
     Dosage: 40 DF, ONCE/SINGLE
     Route: 048
     Dates: start: 20140426, end: 20140426
  4. INDOXEN [Suspect]
     Active Substance: INDOMETHACIN
     Indication: INTENTIONAL SELF-INJURY
     Dosage: 5 DF, ONCE/SINGLE
     Route: 048
     Dates: start: 20140426, end: 20140426
  5. GABAPENTIN. [Concomitant]
     Active Substance: GABAPENTIN

REACTIONS (2)
  - Bradykinesia [Recovered/Resolved]
  - Drug abuse [Recovered/Resolved]

NARRATIVE: CASE EVENT DATE: 20140427
